FAERS Safety Report 6791605-1 (Version None)
Quarter: 2010Q2

REPORT INFORMATION
  Report Type: 
  Country: None (occurrence: None)
  Receive Date: 20100624
  Receipt Date: 20090429
  Transmission Date: 20101027
  Serious: Yes (Other)
  Sender: FDA-Public Use
  Company Number: US-PFIZER INC-2008057496

PATIENT
  Sex: Female
  Weight: 87 kg

DRUGS (7)
  1. PROVERA [Suspect]
     Indication: HORMONE REPLACEMENT THERAPY
     Dosage: 2.5 MG, UNK
     Route: 048
     Dates: start: 19900130, end: 19930601
  2. PROVERA [Suspect]
     Dosage: 10 MG, UNK
     Dates: start: 19930101, end: 19930101
  3. PROVERA [Suspect]
     Dosage: 2.5 MG, UNK
     Dates: start: 19930101, end: 19990501
  4. PREMARIN [Suspect]
     Indication: HORMONE REPLACEMENT THERAPY
     Dosage: 0.625 MG, UNK
     Dates: start: 19900130, end: 19930601
  5. ESTRACE [Suspect]
     Indication: HORMONE REPLACEMENT THERAPY
     Dosage: 1 MG, UNK
     Dates: start: 19930101, end: 19990501
  6. NORVASC [Concomitant]
     Indication: HYPERTENSION
     Dosage: 5 MG, 1X/DAY
     Dates: start: 19960101, end: 20061101
  7. CALTRATE + D [Concomitant]

REACTIONS (1)
  - BREAST CANCER FEMALE [None]
